FAERS Safety Report 5737116-3 (Version None)
Quarter: 2008Q2

REPORT INFORMATION
  Report Type: 
  Country: None (occurrence: None)
  Receive Date: 20080513
  Receipt Date: 20080513
  Transmission Date: 20081010
  Serious: Yes (Other)
  Sender: FDA-Public Use
  Company Number: None

PATIENT
  Age: 37 Year
  Sex: Female
  Weight: 72.5755 kg

DRUGS (1)
  1. CREST PRO-HEALTH MOUTHWASH CREST [Suspect]
     Indication: BREATH ODOUR
     Dosage: 20 ML ONCE DAILY DENTAL
     Route: 004
     Dates: start: 20080115, end: 20080512

REACTIONS (1)
  - TOOTH DISCOLOURATION [None]
